FAERS Safety Report 8398847-2 (Version None)
Quarter: 2012Q2

REPORT INFORMATION
  Report Type: 
  Country: None (occurrence: None)
  Receive Date: 20120524
  Receipt Date: 20120510
  Transmission Date: 20120825
  Serious: Yes (Other)
  Sender: FDA-Public Use
  Company Number: UCM201205-000044

PATIENT
  Age: 50 Year
  Sex: Female

DRUGS (6)
  1. LITHIUM [Suspect]
  2. VENLAFAXINE [Suspect]
     Dosage: SEE IMAGE
  3. BISOPROLOL FUMARATE [Suspect]
  4. LEVOTHYROXINE SODIUM [Suspect]
  5. FLUOXETINE [Suspect]
     Dosage: 60 MG/DAY
  6. FLUOXETINE [Suspect]

REACTIONS (2)
  - DRUG INTERACTION [None]
  - SEROTONIN SYNDROME [None]
